FAERS Safety Report 4680091-3 (Version None)
Quarter: 2005Q2

REPORT INFORMATION
  Report Type: 
  Country: None (occurrence: None)
  Receive Date: 20050531
  Receipt Date: 20050516
  Transmission Date: 20051028
  Serious: Yes (Other)
  Sender: FDA-Public Use
  Company Number: 2005076674

PATIENT
  Age: 49 Year
  Sex: Female

DRUGS (1)
  1. CELEBREX [Suspect]
     Indication: ILL-DEFINED DISORDER
     Dosage: 200 MG (200 MG, 1 IN 1 D), ORAL
     Route: 048
     Dates: start: 20030101, end: 20050201

REACTIONS (6)
  - ABDOMINAL WALL DISORDER [None]
  - INFLAMMATION [None]
  - OESOPHAGEAL DISORDER [None]
  - PAIN [None]
  - THROAT TIGHTNESS [None]
  - WEIGHT INCREASED [None]
